FAERS Safety Report 18493511 (Version 1)
Quarter: 2020Q4

REPORT INFORMATION
  Report Type: Spontaneous
  Country: US (occurrence: US)
  Receive Date: 20201112
  Receipt Date: 20201112
  Transmission Date: 20210114
  Serious: Yes (Hospitalization)
  Sender: FDA-Public Use
  Company Number: US-UNITED THERAPEUTICS-UNT-2020-016754

PATIENT
  Age: 40 Year
  Sex: Female
  Weight: 86.17 kg

DRUGS (3)
  1. REMODULIN [Suspect]
     Active Substance: TREPROSTINIL
     Dosage: UNK UNK, CONTINUING (INCREASED DOSE)
     Route: 058
     Dates: start: 202010
  2. REMODULIN [Suspect]
     Active Substance: TREPROSTINIL
     Dosage: 0.0222 ?G/KG, CONTINUING
     Route: 058
  3. REMODULIN [Suspect]
     Active Substance: TREPROSTINIL
     Indication: PULMONARY ARTERIAL HYPERTENSION
     Dosage: UNK UNK, CONTINUING
     Route: 058
     Dates: start: 20180612

REACTIONS (3)
  - Heart rate abnormal [Unknown]
  - Dyspnoea [Unknown]
  - Headache [Unknown]

NARRATIVE: CASE EVENT DATE: 202010
